FAERS Safety Report 5629362-4 (Version None)
Quarter: 2008Q1

REPORT INFORMATION
  Report Type: 
  Country: None (occurrence: None)
  Receive Date: 20080218
  Receipt Date: 20080208
  Transmission Date: 20080703
  Serious: Yes (Hospitalization, Other)
  Sender: FDA-Public Use
  Company Number: GB-ELI_LILLY_AND_COMPANY-GB200802001926

PATIENT
  Age: 69 Year
  Sex: Female

DRUGS (8)
  1. OLANZAPINE [Suspect]
     Dosage: 10 MG, DAILY (1/D)
     Route: 048
     Dates: start: 20080122
  2. CARBIMAZOLE [Concomitant]
     Dosage: 20 MG, DAILY (1/D)
     Route: 048
     Dates: start: 19970101, end: 20000101
  3. AMOXICILLIN [Concomitant]
     Dosage: 250 MG, 3/D
     Route: 048
     Dates: start: 20080101, end: 20080101
  4. CO-DYDRAMOL [Concomitant]
     Dosage: 2 D/F, EVERY 3 HRS
     Route: 048
     Dates: end: 20080101
  5. FUROSEMIDE [Concomitant]
     Dosage: 20 MG, DAILY (1/D)
     Route: 048
     Dates: start: 20080101, end: 20080101
  6. OMEPRAZOLE [Concomitant]
     Dosage: 40 MG, DAILY (1/D)
     Route: 048
  7. PROCYCLIDINE HYDROCHLORIDE 2MG TAB [Concomitant]
     Dosage: 5 MG, 3/D
     Route: 048
     Dates: end: 20080101
  8. SENNA [Concomitant]
     Dosage: 15 MG, DAILY (1/D)
     Route: 048

REACTIONS (4)
  - HYPOTHYROIDISM [None]
  - LOWER RESPIRATORY TRACT INFECTION [None]
  - PLATELET COUNT DECREASED [None]
  - URINARY RETENTION [None]
